FAERS Safety Report 8804414 (Version 2)
Quarter: 2013Q1

REPORT INFORMATION
  Report Type: Spontaneous
  Country: BR (occurrence: BR)
  Receive Date: 20120923
  Receipt Date: 20130310
  Transmission Date: 20140127
  Serious: Yes (Other)
  Sender: FDA-Public Use
  Company Number: BR-US-EMD SERONO, INC.-7161344

PATIENT
  Age: 16 None
  Sex: Male

DRUGS (2)
  1. SAIZEN [Suspect]
     Indication: GROWTH HORMONE DEFICIENCY
     Route: 058
     Dates: start: 201001
  2. SAIZEN [Suspect]
     Route: 058
     Dates: end: 20120824

REACTIONS (2)
  - Infectious mononucleosis [Recovered/Resolved]
  - Tibia fracture [Recovering/Resolving]
